FAERS Safety Report 9684248 (Version 2)
Quarter: 2013Q4

REPORT INFORMATION
  Report Type: Spontaneous
  Country: JP (occurrence: JP)
  Receive Date: 20131112
  Receipt Date: 20131203
  Transmission Date: 20140711
  Serious: Yes (Other)
  Sender: FDA-Public Use
  Company Number: JP-GLAXOSMITHKLINE-B0941118A

PATIENT
  Age: 80 Year
  Sex: Male

DRUGS (2)
  1. SERETIDE [Suspect]
     Indication: ASTHMA
     Route: 055
     Dates: start: 201301
  2. NATEGLINIDE [Concomitant]
     Route: 048

REACTIONS (3)
  - Adrenal suppression [Unknown]
  - Diabetes mellitus inadequate control [Recovering/Resolving]
  - Insulin resistance [Recovering/Resolving]
